FAERS Safety Report 9278079 (Version 1)
Quarter: 2013Q2

REPORT INFORMATION
  Report Type: Spontaneous
  Country: US (occurrence: US)
  Receive Date: 20130508
  Receipt Date: 20130508
  Transmission Date: 20140414
  Serious: Yes (Other)
  Sender: FDA-Public Use
  Company Number: US-PFIZER INC-2013140031

PATIENT
  Age: 65 Year
  Sex: Female
  Weight: 79.82 kg

DRUGS (2)
  1. PREMARIN [Suspect]
     Indication: HORMONE REPLACEMENT THERAPY
     Dosage: UNK
     Route: 067
     Dates: end: 201304
  2. PREMARIN [Suspect]
     Indication: HORMONE REPLACEMENT THERAPY
     Dosage: UNK, 1X/DAY
     Route: 048
     Dates: start: 1998

REACTIONS (12)
  - Product quality issue [Unknown]
  - Sinusitis [Unknown]
  - Tonsillitis [Unknown]
  - Labyrinthitis [Unknown]
  - Dizziness [Unknown]
  - Activities of daily living impaired [Unknown]
  - Malaise [Unknown]
  - Hypersensitivity [Unknown]
  - Vulvovaginal pain [Unknown]
  - Vulvovaginal discomfort [Unknown]
  - Limb injury [Unknown]
  - Weight decreased [Unknown]
